FAERS Safety Report 5002110-7 (Version None)
Quarter: 2006Q2

REPORT INFORMATION
  Report Type: 
  Country: None (occurrence: None)
  Receive Date: 20060515
  Receipt Date: 20050718
  Transmission Date: 20061013
  Serious: Yes (Hospitalization, Other)
  Sender: FDA-Public Use
  Company Number: US-MERCK-0507USA02274

PATIENT
  Age: 75 Year
  Sex: Female
  Weight: 55 kg

DRUGS (16)
  1. VIOXX [Suspect]
     Indication: MENISCUS LESION
     Route: 048
     Dates: start: 20000301, end: 20040901
  2. VIOXX [Suspect]
     Route: 048
     Dates: start: 20030811, end: 20031003
  3. VIOXX [Suspect]
     Indication: OSTEOARTHRITIS
     Route: 048
     Dates: start: 20000301, end: 20040901
  4. VIOXX [Suspect]
     Route: 048
     Dates: start: 20030811, end: 20031003
  5. LIPITOR [Concomitant]
     Route: 065
  6. ATENOLOL [Concomitant]
     Route: 065
  7. NORVASC [Concomitant]
     Route: 065
  8. PLAVIX [Concomitant]
     Route: 065
  9. ASPIRIN [Concomitant]
     Route: 065
  10. ZOLOFT [Concomitant]
     Route: 065
  11. PLENDIL [Concomitant]
     Route: 065
  12. MECLIZINE [Concomitant]
     Route: 065
  13. NIZORAL [Concomitant]
     Route: 065
  14. ELOCON [Concomitant]
     Route: 065
  15. ZOCOR [Concomitant]
     Route: 065
  16. AUGMENTIN '125' [Concomitant]
     Route: 065

REACTIONS (32)
  - ABDOMINAL DISTENSION [None]
  - ACUTE MYOCARDIAL INFARCTION [None]
  - ARTHRALGIA [None]
  - ASTHENIA [None]
  - ATRIOVENTRICULAR BLOCK COMPLETE [None]
  - BACK PAIN [None]
  - BALANCE DISORDER [None]
  - BUTTOCK PAIN [None]
  - CARDIAC ARREST [None]
  - CAROTID ARTERY OCCLUSION [None]
  - CAROTID ARTERY STENOSIS [None]
  - CEREBRAL ARTERIOSCLEROSIS [None]
  - DEVICE RELATED INFECTION [None]
  - DIZZINESS [None]
  - DIZZINESS POSTURAL [None]
  - EXTRASYSTOLES [None]
  - GASTROINTESTINAL DISORDER [None]
  - HEADACHE [None]
  - HYPONATRAEMIA [None]
  - MITRAL VALVE INCOMPETENCE [None]
  - MYOCARDIAL INFARCTION [None]
  - PERIPHERAL VASCULAR DISORDER [None]
  - POSTOPERATIVE INFECTION [None]
  - SICK SINUS SYNDROME [None]
  - SINUS ARREST [None]
  - STRESS [None]
  - TRANSIENT ISCHAEMIC ATTACK [None]
  - TRICUSPID VALVE INCOMPETENCE [None]
  - VISUAL DISTURBANCE [None]
  - WEIGHT DECREASED [None]
  - WOUND SECRETION [None]
  - WRONG TECHNIQUE IN DRUG USAGE PROCESS [None]
